FAERS Safety Report 17809378 (Version 2)
Quarter: 2020Q2

REPORT INFORMATION
  Report Type: Report from Study
  Country: CA (occurrence: CA)
  Receive Date: 20200520
  Receipt Date: 20200528
  Transmission Date: 20200714
  Serious: Yes (Disabling)
  Sender: FDA-Public Use
  Company Number: CA-ACTELION-A-NJ2020-201162

PATIENT
  Age: 81 Year
  Sex: Male

DRUGS (21)
  1. VENTOLIN [Concomitant]
     Active Substance: ALBUTEROL SULFATE
  2. SALBUTAMOL [Concomitant]
     Active Substance: ALBUTEROL
  3. VITAMINS NOS [Concomitant]
     Active Substance: VITAMINS
  4. PANTOPRAZOLE [Concomitant]
     Active Substance: PANTOPRAZOLE
  5. UPTRAVI [Suspect]
     Active Substance: SELEXIPAG
     Dosage: 200 MCG, BID
     Route: 048
     Dates: start: 20200120
  6. UPTRAVI [Suspect]
     Active Substance: SELEXIPAG
     Dosage: 600 MCG
     Route: 048
  7. SYNTHROID [Concomitant]
     Active Substance: LEVOTHYROXINE SODIUM
  8. ATENOLOL. [Concomitant]
     Active Substance: ATENOLOL
  9. DULOXETINE. [Concomitant]
     Active Substance: DULOXETINE
  10. VOLIBRIS [Concomitant]
     Active Substance: AMBRISENTAN
  11. UPTRAVI [Suspect]
     Active Substance: SELEXIPAG
     Indication: PULMONARY ARTERIAL HYPERTENSION
     Dosage: 1200 MCG
     Route: 048
  12. UPTRAVI [Suspect]
     Active Substance: SELEXIPAG
     Dosage: 1600 MCG, BID
     Route: 048
  13. ATORVASTATIN [Concomitant]
     Active Substance: ATORVASTATIN
  14. FUROSEMIDE. [Concomitant]
     Active Substance: FUROSEMIDE
  15. ADCIRCA [Concomitant]
     Active Substance: TADALAFIL
  16. INSPIOLTO RESPIMAT [Concomitant]
     Active Substance: OLODATEROL HYDROCHLORIDE\TIOTROPIUM BROMIDE MONOHYDRATE
  17. SENOKOT [Concomitant]
     Active Substance: SENNOSIDES
  18. UPTRAVI [Suspect]
     Active Substance: SELEXIPAG
     Dosage: 1200 MCG IN AM, 1000 MCG IN PM
     Route: 048
  19. UPTRAVI [Suspect]
     Active Substance: SELEXIPAG
     Dosage: 1400 MCG, BID
     Route: 048
  20. TAMSULOSIN [Concomitant]
     Active Substance: TAMSULOSIN
  21. DYMISTA [Concomitant]
     Active Substance: AZELASTINE HYDROCHLORIDE\FLUTICASONE PROPIONATE

REACTIONS (9)
  - Musculoskeletal pain [Recovering/Resolving]
  - Fatigue [Recovering/Resolving]
  - Insomnia [Not Recovered/Not Resolved]
  - Coronavirus infection [Not Recovered/Not Resolved]
  - Dyspnoea [Recovering/Resolving]
  - Headache [Unknown]
  - Rhinorrhoea [Not Recovered/Not Resolved]
  - Anxiety [Not Recovered/Not Resolved]
  - Unevaluable event [Recovering/Resolving]

NARRATIVE: CASE EVENT DATE: 20200120
